FAERS Safety Report 4576245-7 (Version None)
Quarter: 2005Q1

REPORT INFORMATION
  Report Type: 
  Country: None (occurrence: None)
  Receive Date: 20050207
  Receipt Date: 20050202
  Transmission Date: 20050727
  Serious: Yes (Hospitalization)
  Sender: FDA-Public Use
  Company Number: 2005-02-0039

PATIENT
  Age: 66 Year
  Sex: Male

DRUGS (3)
  1. INTRON A [Suspect]
     Dosage: SUBCUTANEOUS
     Route: 058
     Dates: start: 20041207, end: 20041220
  2. CHLORAMBUCIL CAPSULES [Suspect]
     Dosage: 4 MG QD ORAL
     Route: 048
     Dates: start: 20040827, end: 20041208
  3. CORTANCYL [Suspect]
     Dosage: 30 MG QD ORAL
     Route: 048
     Dates: start: 20040706, end: 20041219

REACTIONS (1)
  - OSTEONECROSIS [None]
